FAERS Safety Report 25897341 (Version 1)
Quarter: 2025Q4

REPORT INFORMATION
  Report Type: Spontaneous
  Country: US (occurrence: None)
  Receive Date: 20251008
  Receipt Date: 20251008
  Transmission Date: 20260118
  Serious: No
  Sender: FDA-CTU
  Company Number: None

PATIENT
  Sex: Male

DRUGS (1)
  1. TICE BCG [Suspect]
     Active Substance: BACILLUS CALMETTE-GUERIN SUBSTRAIN TICE LIVE ANTIGEN

REACTIONS (7)
  - Drug ineffective [None]
  - Product preparation error [None]
  - Product formulation issue [None]
  - Incorrect dosage administered [None]
  - Product supply issue [None]
  - Manufacturing stability testing issue [None]
  - Suspected product quality issue [None]
